FAERS Safety Report 23254492 (Version 1)
Quarter: 2023Q4

REPORT INFORMATION
  Report Type: Spontaneous
  Country: US (occurrence: US)
  Receive Date: 20231202
  Receipt Date: 20231202
  Transmission Date: 20240110
  Serious: No
  Sender: FDA-Public Use
  Company Number: US-PURDUE-USA-2023-0304366

PATIENT
  Age: 65 Year
  Sex: Male
  Weight: 117.91 kg

DRUGS (4)
  1. HYSINGLA ER [Suspect]
     Active Substance: HYDROCODONE BITARTRATE
     Indication: Pain management
     Dosage: 1 TABLET, DAILY (1X A DAY AT BEDTIME)
     Route: 048
     Dates: start: 20230816
  2. HYDROCODONE BITARTRATE [Concomitant]
     Active Substance: HYDROCODONE BITARTRATE
     Indication: Breakthrough pain
     Dosage: 5 MILLIGRAM, PRN
     Route: 048
     Dates: start: 20230816
  3. HYDROCODONE BITARTRATE [Concomitant]
     Active Substance: HYDROCODONE BITARTRATE
     Dosage: 5 MILLIGRAM, Q4H PRN
     Route: 048
  4. HYDROCODONE BITARTRATE [Concomitant]
     Active Substance: HYDROCODONE BITARTRATE
     Dosage: 7.5 MG ( ON FOR ABOUT A MONTH)
     Route: 048

REACTIONS (2)
  - Drug ineffective [Not Recovered/Not Resolved]
  - Product label issue [Unknown]

NARRATIVE: CASE EVENT DATE: 20230816
